FAERS Safety Report 5339924-X (Version None)
Quarter: 2007Q2

REPORT INFORMATION
  Report Type: 
  Country: None (occurrence: None)
  Receive Date: 20070531
  Receipt Date: 20070522
  Transmission Date: 20071010
  Serious: Yes (Other)
  Sender: FDA-Public Use
  Company Number: US-KINGPHARMUSA00001-K200700625

PATIENT

DRUGS (7)
  1. ALTACE [Suspect]
     Indication: HYPERTENSION
     Dosage: 2.5 MG, QD
     Route: 048
     Dates: start: 20041001, end: 20060501
  2. ALTACE [Suspect]
     Dosage: 5 MG, QD
     Route: 048
     Dates: start: 20060501, end: 20070112
  3. SINTROM [Concomitant]
  4. LIPANOR [Concomitant]
  5. DIGOXIN [Concomitant]
  6. AMLOR [Concomitant]
  7. JOSIR [Concomitant]

REACTIONS (2)
  - LEUKAEMIA [None]
  - SIDEROBLASTIC ANAEMIA [None]
